FAERS Safety Report 15979623 (Version 1)
Quarter: 2019Q1

REPORT INFORMATION
  Report Type: Spontaneous
  Country: US (occurrence: US)
  Receive Date: 20190219
  Receipt Date: 20190219
  Transmission Date: 20190418
  Serious: No
  Sender: FDA-Public Use
  Company Number: US-PFIZER INC-2019074267

PATIENT
  Age: 64 Year
  Sex: Female
  Weight: 74.84 kg

DRUGS (1)
  1. XELJANZ [Suspect]
     Active Substance: TOFACITINIB CITRATE
     Indication: RHEUMATOID ARTHRITIS
     Dosage: 5 MG, 2X/DAY (60/BTL)
     Dates: start: 201711

REACTIONS (4)
  - Upper-airway cough syndrome [Unknown]
  - Sinus pain [Unknown]
  - Paranasal sinus discomfort [Unknown]
  - Sinus congestion [Unknown]

NARRATIVE: CASE EVENT DATE: 201802
